FAERS Safety Report 6804490-6 (Version None)
Quarter: 2010Q2

REPORT INFORMATION
  Report Type: 
  Country: None (occurrence: None)
  Receive Date: 20100628
  Receipt Date: 20070402
  Transmission Date: 20101027
  Serious: No
  Sender: FDA-Public Use
  Company Number: US-PFIZER INC-2007026584

PATIENT
  Sex: Female

DRUGS (6)
  1. XALATAN [Suspect]
     Indication: GLAUCOMA
  2. DIPIVEFRINE [Concomitant]
  3. OMEPRAZOLE [Concomitant]
     Route: 048
  4. CRESTOR [Concomitant]
     Route: 048
  5. LASIX [Concomitant]
     Route: 048
  6. SYNTHROID [Concomitant]
     Route: 048

REACTIONS (1)
  - EYE IRRITATION [None]
